FAERS Safety Report 8845693 (Version 1)
Quarter: 2012Q4

REPORT INFORMATION
  Report Type: 
  Country: US (occurrence: US)
  Receive Date: 20121017
  Receipt Date: 20121017
  Transmission Date: 20130627
  Serious: Yes (Other)
  Sender: FDA-Public Use
  Company Number: US-ROCHE-1144145

PATIENT
  Sex: Male
  Weight: 64.4 kg

DRUGS (4)
  1. ACCUTANE [Suspect]
     Indication: ACNE
     Route: 048
     Dates: start: 20010816, end: 20011117
  2. CLINDAMYCIN [Concomitant]
  3. CLEOCIN T [Concomitant]
  4. MINOCYCLINE [Concomitant]

REACTIONS (8)
  - Inflammatory bowel disease [Unknown]
  - Crohn^s disease [Unknown]
  - Colitis ulcerative [Unknown]
  - Anal fissure [Unknown]
  - Anal fistula [Unknown]
  - Perirectal abscess [Unknown]
  - Anal abscess [Unknown]
  - Depression [Unknown]
